FAERS Safety Report 6731870-X (Version None)
Quarter: 2010Q2

REPORT INFORMATION
  Report Type: 
  Country: None (occurrence: None)
  Receive Date: 20100514
  Receipt Date: 20100429
  Transmission Date: 20101027
  Serious: Yes (Hospitalization)
  Sender: FDA-Public Use
  Company Number: US-DEXPHARM-20100558

PATIENT
  Sex: Female
  Weight: 61.68 kg

DRUGS (3)
  1. OMEPRAZOLE [Suspect]
     Indication: OESOPHAGEAL DISORDER
     Dosage: 20 MG ONCE A DAY, ORAL
     Route: 048
     Dates: start: 20100317, end: 20100323
  2. ACTOS (PIOGLITAZOE HDROCHLORIDE) [Concomitant]
  3. LISINOPRIL [Concomitant]

REACTIONS (16)
  - ANAPHYLACTIC SHOCK [None]
  - APPARENT DEATH [None]
  - BLOOD PRESSURE DECREASED [None]
  - BLOOD PRESSURE INCREASED [None]
  - CLONUS [None]
  - FALL [None]
  - HALLUCINATION [None]
  - HEAD INJURY [None]
  - HEART RATE INCREASED [None]
  - LACERATION [None]
  - LOGORRHOEA [None]
  - MUSCLE TIGHTNESS [None]
  - PAIN IN JAW [None]
  - PERSONALITY CHANGE [None]
  - SELF-MEDICATION [None]
  - TETANY [None]
